FAERS Safety Report 21197759 (Version 1)
Quarter: 2022Q3

REPORT INFORMATION
  Report Type: Spontaneous
  Country: None (occurrence: US)
  Receive Date: 20220810
  Receipt Date: 20220810
  Transmission Date: 20221026
  Serious: No
  Sender: FDA-Public Use
  Company Number: US-Intersect Ent, Inc.-2131697

PATIENT
  Age: 39 Year
  Sex: Female

DRUGS (1)
  1. SINUVA [Suspect]
     Active Substance: MOMETASONE FUROATE
     Indication: Nasal polyps
     Route: 006
     Dates: start: 20220307, end: 20220512

REACTIONS (3)
  - Haemoglobin decreased [Recovered/Resolved]
  - Asthenia [Recovered/Resolved]
  - Nasal crusting [Recovered/Resolved]

NARRATIVE: CASE EVENT DATE: 20220307
